FAERS Safety Report 4860859-0 (Version None)
Quarter: 2005Q4

REPORT INFORMATION
  Report Type: 
  Country: None (occurrence: None)
  Receive Date: 20051220
  Receipt Date: 20051208
  Transmission Date: 20060501
  Serious: Yes (Other)
  Sender: FDA-Public Use
  Company Number: DE-BRISTOL-MYERS SQUIBB COMPANY-13213624

PATIENT
  Age: 50 Year
  Sex: Female

DRUGS (3)
  1. CARBOPLATIN [Suspect]
     Indication: OVARIAN CANCER
  2. TAXOL [Suspect]
     Indication: OVARIAN CANCER
  3. ERYPO [Suspect]
     Indication: HAEMOGLOBIN DECREASED
     Route: 058

REACTIONS (3)
  - ABDOMINAL RIGIDITY [None]
  - CONSTIPATION [None]
  - NAUSEA [None]
